FAERS Safety Report 21586876 (Version 1)
Quarter: 2022Q4

REPORT INFORMATION
  Report Type: Report from Study
  Country: CA (occurrence: CA)
  Receive Date: 20221113
  Receipt Date: 20221113
  Transmission Date: 20230113
  Serious: Yes (Other)
  Sender: FDA-Public Use
  Company Number: CA-BEH-2022151731

PATIENT
  Age: 60 Year
  Sex: Male

DRUGS (6)
  1. BERINERT [Suspect]
     Active Substance: HUMAN C1-ESTERASE INHIBITOR
     Indication: Product used for unknown indication
     Dosage: 4 TIMES PER YEAR
     Route: 042
  2. BERINERT [Suspect]
     Active Substance: HUMAN C1-ESTERASE INHIBITOR
     Indication: Product used for unknown indication
     Dosage: 4 TIMES PER YEAR
     Route: 042
  3. BERINERT [Suspect]
     Active Substance: HUMAN C1-ESTERASE INHIBITOR
     Indication: Product used for unknown indication
     Dosage: 4 TIMES PER YEAR
     Route: 042
  4. BERINERT [Suspect]
     Active Substance: HUMAN C1-ESTERASE INHIBITOR
     Indication: Product used for unknown indication
     Dosage: 4 TIMES PER YEAR
     Route: 042
  5. DANAZOL [Concomitant]
     Active Substance: DANAZOL
     Indication: Prophylaxis
     Dosage: UNK
  6. BILASTINE [Concomitant]
     Active Substance: BILASTINE
     Indication: Autoimmune disorder
     Dosage: UNK

REACTIONS (5)
  - Autoimmune disorder [Unknown]
  - Neuralgia [Unknown]
  - Pain in extremity [Unknown]
  - Gait disturbance [Unknown]
  - Hyperlipidaemia [Unknown]
